FAERS Safety Report 9817941 (Version 3)
Quarter: 2014Q2

REPORT INFORMATION
  Report Type: Spontaneous
  Country: US (occurrence: US)
  Receive Date: 20140115
  Receipt Date: 20140624
  Transmission Date: 20141212
  Serious: No
  Sender: FDA-Public Use
  Company Number: US-009507513-1401USA004189

PATIENT
  Sex: Male
  Weight: 116.55 kg

DRUGS (4)
  1. PROSCAR [Suspect]
     Indication: ALOPECIA
     Dosage: 5 MG, UNK
     Route: 048
     Dates: start: 20010123
  2. PROSCAR [Suspect]
     Dosage: 5 MG, UNK
     Route: 048
     Dates: start: 20020605, end: 20070707
  3. PROPECIA [Suspect]
     Indication: ALOPECIA
     Dosage: 1 MG, QD
     Route: 048
     Dates: start: 20020124, end: 20041213
  4. FINASTERIDE [Suspect]
     Indication: ALOPECIA
     Dosage: 5 MG, UNK
     Route: 048
     Dates: start: 20060624, end: 20110211

REACTIONS (5)
  - Dysuria [Unknown]
  - Sexual dysfunction [Not Recovered/Not Resolved]
  - Erectile dysfunction [Not Recovered/Not Resolved]
  - Drug administration error [Unknown]
  - Sinusitis [Unknown]
